FAERS Safety Report 14379162 (Version 3)
Quarter: 2018Q2

REPORT INFORMATION
  Report Type: Spontaneous
  Country: FR (occurrence: FR)
  Receive Date: 20180112
  Receipt Date: 20180402
  Transmission Date: 20180711
  Serious: Yes (Other)
  Sender: FDA-Public Use
  Company Number: FR-AUROBINDO-AUR-APL-2018-001748

PATIENT
  Age: 34 Year
  Sex: Female

DRUGS (37)
  1. PREDNISONE. [Suspect]
     Active Substance: PREDNISONE
     Dosage: ()
  2. MYCOPHENOLATE MOFETIL. [Suspect]
     Active Substance: MYCOPHENOLATE MOFETIL
     Indication: SKIN GRAFT REJECTION
     Dosage: ()
  3. SIROLIMUS. [Suspect]
     Active Substance: SIROLIMUS
     Indication: IMMUNOSUPPRESSANT DRUG THERAPY
     Dosage: ()
     Route: 065
  4. SIROLIMUS. [Suspect]
     Active Substance: SIROLIMUS
     Indication: SALVAGE THERAPY
     Dosage: UNK ()
     Route: 065
  5. SIROLIMUS. [Suspect]
     Active Substance: SIROLIMUS
     Dosage: UNK ()
     Route: 065
  6. TACROLIMUS. [Suspect]
     Active Substance: TACROLIMUS
     Indication: SALVAGE THERAPY
     Dosage: UNK ()
     Route: 065
  7. TACROLIMUS. [Suspect]
     Active Substance: TACROLIMUS
     Indication: IMMUNOSUPPRESSION
     Dosage: ()
  8. TACROLIMUS. [Suspect]
     Active Substance: TACROLIMUS
     Dosage: ()
  9. PREDNISONE. [Suspect]
     Active Substance: PREDNISONE
     Dosage: ()
  10. MYCOPHENOLATE MOFETIL. [Suspect]
     Active Substance: MYCOPHENOLATE MOFETIL
     Indication: IMMUNOSUPPRESSANT DRUG THERAPY
     Dosage: UNK ()
  11. MYCOPHENOLATE MOFETIL. [Suspect]
     Active Substance: MYCOPHENOLATE MOFETIL
     Dosage: ()
  12. SIROLIMUS. [Suspect]
     Active Substance: SIROLIMUS
     Indication: SKIN GRAFT REJECTION
     Dosage: ()
  13. SIROLIMUS. [Suspect]
     Active Substance: SIROLIMUS
     Dosage: ()
  14. TACROLIMUS. [Suspect]
     Active Substance: TACROLIMUS
     Indication: TRANSPLANT
     Dosage: ()
     Route: 065
  15. TACROLIMUS. [Suspect]
     Active Substance: TACROLIMUS
     Dosage: ()
     Route: 065
  16. PREDNISONE. [Suspect]
     Active Substance: PREDNISONE
     Dosage: 20 MG, QD
     Route: 065
  17. SIROLIMUS. [Suspect]
     Active Substance: SIROLIMUS
     Dosage: ()
  18. TACROLIMUS. [Suspect]
     Active Substance: TACROLIMUS
     Indication: IMMUNOSUPPRESSANT DRUG THERAPY
     Dosage: UNK ()
     Route: 065
  19. PREDNISONE. [Suspect]
     Active Substance: PREDNISONE
     Indication: TRANSPLANT
     Dosage: UNK ()
     Route: 065
  20. PREDNISONE. [Suspect]
     Active Substance: PREDNISONE
     Indication: IMMUNOSUPPRESSION
     Dosage: UNK ()
     Route: 065
  21. SIROLIMUS. [Suspect]
     Active Substance: SIROLIMUS
     Dosage: ()
  22. SIROLIMUS. [Suspect]
     Active Substance: SIROLIMUS
     Dosage: ()
  23. PREDNISONE. [Suspect]
     Active Substance: PREDNISONE
     Indication: IMMUNOSUPPRESSANT DRUG THERAPY
     Dosage: 20 MG, QD
     Route: 065
  24. MYCOPHENOLATE MOFETIL. [Suspect]
     Active Substance: MYCOPHENOLATE MOFETIL
     Indication: TRANSPLANT
     Dosage: ()
     Route: 065
  25. MYCOPHENOLATE MOFETIL. [Suspect]
     Active Substance: MYCOPHENOLATE MOFETIL
     Indication: IMMUNOSUPPRESSION
     Dosage: UNK ()
     Route: 065
  26. MYCOPHENOLATE MOFETIL. [Suspect]
     Active Substance: MYCOPHENOLATE MOFETIL
     Dosage: ()
  27. SIROLIMUS. [Suspect]
     Active Substance: SIROLIMUS
     Indication: TRANSPLANT
     Dosage: UNK ()
     Route: 065
  28. SIROLIMUS. [Suspect]
     Active Substance: SIROLIMUS
     Indication: IMMUNOSUPPRESSION
     Dosage: ()
  29. PREDNISONE. [Suspect]
     Active Substance: PREDNISONE
     Indication: SALVAGE THERAPY
     Dosage: UNK ()
     Route: 065
  30. PREDNISONE. [Suspect]
     Active Substance: PREDNISONE
     Dosage: UNK ()
     Route: 065
  31. MYCOPHENOLATE MOFETIL. [Suspect]
     Active Substance: MYCOPHENOLATE MOFETIL
     Indication: SALVAGE THERAPY
     Dosage: UNK ()
     Route: 065
  32. MYCOPHENOLATE MOFETIL. [Suspect]
     Active Substance: MYCOPHENOLATE MOFETIL
     Dosage: UNK ()
     Route: 065
  33. TACROLIMUS. [Suspect]
     Active Substance: TACROLIMUS
     Dosage: ()
  34. TACROLIMUS. [Suspect]
     Active Substance: TACROLIMUS
     Dosage: ()
  35. PREDNISONE. [Suspect]
     Active Substance: PREDNISONE
     Indication: SKIN GRAFT REJECTION
     Dosage: 20 MG, QD
     Route: 065
  36. MYCOPHENOLATE MOFETIL. [Suspect]
     Active Substance: MYCOPHENOLATE MOFETIL
     Dosage: ()
  37. TACROLIMUS. [Suspect]
     Active Substance: TACROLIMUS
     Indication: SKIN GRAFT REJECTION
     Dosage: ()
     Route: 065

REACTIONS (2)
  - Skin graft rejection [Unknown]
  - Product use in unapproved indication [Unknown]
